FAERS Safety Report 20811167 (Version 4)
Quarter: 2022Q3

REPORT INFORMATION
  Report Type: Spontaneous
  Country: ES (occurrence: ES)
  Receive Date: 20220510
  Receipt Date: 20220801
  Transmission Date: 20221027
  Serious: Yes (Hospitalization, Other)
  Sender: FDA-Public Use
  Company Number: ES-JAZZ-2022-ES-014662

PATIENT
  Age: 58 Year
  Sex: Female
  Weight: 62.6 kg

DRUGS (1)
  1. ZEPZELCA [Suspect]
     Active Substance: LURBINECTEDIN
     Indication: Ovarian cancer
     Dosage: 5.4 MILLIGRAM, CYCLE 19
     Route: 042
     Dates: start: 20210203, end: 20220404

REACTIONS (8)
  - Rhabdomyolysis [Not Recovered/Not Resolved]
  - Embolism [Not Recovered/Not Resolved]
  - Device related infection [Unknown]
  - Pneumonia [Unknown]
  - Hyponatraemia [Not Recovered/Not Resolved]
  - Diarrhoea [Not Recovered/Not Resolved]
  - Anaemia [Not Recovered/Not Resolved]
  - Blood creatine increased [Not Recovered/Not Resolved]

NARRATIVE: CASE EVENT DATE: 20210526
